FAERS Safety Report 13479734 (Version 1)
Quarter: 2017Q2

REPORT INFORMATION
  Report Type: Spontaneous
  Country: GB (occurrence: GB)
  Receive Date: 20170425
  Receipt Date: 20170425
  Transmission Date: 20170830
  Serious: Yes (Hospitalization, Disabling)
  Sender: FDA-Public Use
  Company Number: GB-TEVA-761243ACC

PATIENT
  Age: 67 Year
  Sex: Female
  Weight: 10.1 kg

DRUGS (1)
  1. OMEPRAZOLE. [Suspect]
     Active Substance: OMEPRAZOLE
     Indication: DYSPEPSIA
     Dosage: 20 MILLIGRAM DAILY;
     Dates: end: 201701

REACTIONS (10)
  - Nausea [Recovering/Resolving]
  - Night sweats [Recovering/Resolving]
  - Abnormal loss of weight [Recovering/Resolving]
  - Renal impairment [Recovering/Resolving]
  - Decreased appetite [Recovering/Resolving]
  - Fatigue [Recovering/Resolving]
  - Photophobia [Recovering/Resolving]
  - Feeling cold [Recovering/Resolving]
  - Lethargy [Recovering/Resolving]
  - Thirst [Recovering/Resolving]

NARRATIVE: CASE EVENT DATE: 201701
